FAERS Safety Report 4320313-1 (Version None)
Quarter: 2004Q1

REPORT INFORMATION
  Report Type: 
  Country: None (occurrence: None)
  Receive Date: 20040317
  Receipt Date: 20040302
  Transmission Date: 20041129
  Serious: No
  Sender: FDA-Public Use
  Company Number: 204746

PATIENT
  Weight: 80 kg

DRUGS (5)
  1. MABTHERA (RITUXIMAB) CONC FOR SOLUTION OF INFUSION [Suspect]
     Indication: LYMPHOPLASMACYTOID LYMPHOMA/IMMUNOCYTOMA
     Dosage: 700 MG, INTRAVENOUS
     Route: 042
     Dates: start: 20031201
  2. FLUDARABINE PHOSPHATE [Concomitant]
  3. CYCLOPHOSPHAMIDE [Concomitant]
  4. OLANZAPINE [Concomitant]
  5. MIRTAZAPINE [Concomitant]

REACTIONS (6)
  - CLOSTRIDIUM COLITIS [None]
  - CYTOKINE RELEASE SYNDROME [None]
  - DEEP VEIN THROMBOSIS [None]
  - FEBRILE NEUTROPENIA [None]
  - PNEUMONIA [None]
  - THROMBOCYTOPENIA [None]
